FAERS Safety Report 4696309-7 (Version None)
Quarter: 2005Q2

REPORT INFORMATION
  Report Type: 
  Country: None (occurrence: None)
  Receive Date: 20050620
  Receipt Date: 20050614
  Transmission Date: 20051028
  Serious: Yes (Other)
  Sender: FDA-Public Use
  Company Number: 2005088393

PATIENT
  Sex: Female

DRUGS (2)
  1. LIPITOR [Suspect]
     Indication: ILL-DEFINED DISORDER
  2. ACIPHEX [Concomitant]
     Indication: ILL-DEFINED DISORDER

REACTIONS (2)
  - BLADDER OPERATION [None]
  - POST PROCEDURAL COMPLICATION [None]
